FAERS Safety Report 24376108 (Version 1)
Quarter: 2024Q3

REPORT INFORMATION
  Report Type: Spontaneous
  Country: US (occurrence: None)
  Receive Date: 20240926
  Receipt Date: 20240926
  Transmission Date: 20241016
  Serious: No
  Sender: Public
  Company Number: None

PATIENT
  Age: 72 Year
  Sex: Male

DRUGS (1)
  1. APIXABAN [Suspect]
     Active Substance: APIXABAN
     Indication: Portal vein thrombosis
     Dosage: 5.00 MG TWICE A DAY ORAL
     Route: 048

REACTIONS (1)
  - Bleeding varicose vein [None]

NARRATIVE: CASE EVENT DATE: 20231114
